FAERS Safety Report 4962826-5 (Version None)
Quarter: 2006Q2

REPORT INFORMATION
  Report Type: 
  Country: None (occurrence: None)
  Receive Date: 20060403
  Receipt Date: 20060403
  Transmission Date: 20061013
  Serious: No
  Sender: FDA-Public Use
  Company Number: None

PATIENT
  Age: 84 Year
  Sex: Male
  Weight: 75 kg

DRUGS (2)
  1. VICODIN [Suspect]
     Indication: CANCER PAIN
     Dosage: 5/500   1-2QH4PRN    PO
     Route: 048
     Dates: start: 20060104, end: 20060119
  2. MORPHINE SR      15MG      XANODYNE [Suspect]
     Indication: CANCER PAIN
     Dosage: 15MG   1BID   PO
     Route: 048
     Dates: start: 20060104, end: 20060119

REACTIONS (6)
  - ANXIETY [None]
  - CONDITION AGGRAVATED [None]
  - CONSTIPATION [None]
  - DYSPHAGIA [None]
  - ORAL INTAKE REDUCED [None]
  - PAIN [None]
